FAERS Safety Report 22975850 (Version 2)
Quarter: 2023Q4

REPORT INFORMATION
  Report Type: Spontaneous
  Country: US (occurrence: US)
  Receive Date: 20230925
  Receipt Date: 20231026
  Transmission Date: 20240110
  Serious: No
  Sender: FDA-Public Use
  Company Number: US-BRISTOL-MYERS SQUIBB COMPANY-2023-135193

PATIENT
  Age: 77 Year
  Sex: Female

DRUGS (2)
  1. LENALIDOMIDE [Suspect]
     Active Substance: LENALIDOMIDE
     Indication: Plasma cell myeloma
     Dosage: FREQ-DAILY ON DAYS 1-28 OF 28 DAY CYCLE
     Route: 048
     Dates: start: 20230804
  2. LENALIDOMIDE [Suspect]
     Active Substance: LENALIDOMIDE
     Dosage: FREQ-DAILY ON DAYS 1-28 OF 28 DAY CYCLE
     Route: 048
     Dates: start: 20230902

REACTIONS (4)
  - Rash pruritic [Unknown]
  - Somnolence [Unknown]
  - Alopecia [Unknown]
  - Fatigue [Not Recovered/Not Resolved]

NARRATIVE: CASE EVENT DATE: 20230101
